FAERS Safety Report 17136700 (Version 2)
Quarter: 2020Q2

REPORT INFORMATION
  Report Type: Report from Study
  Country: IN (occurrence: IN)
  Receive Date: 20191210
  Receipt Date: 20200424
  Transmission Date: 20200713
  Serious: Yes (Death)
  Sender: FDA-Public Use
  Company Number: IN-PFIZER INC-2019527405

PATIENT

DRUGS (15)
  1. VINBLASTINE [Suspect]
     Active Substance: VINBLASTINE
     Indication: ANAPLASTIC LARGE-CELL LYMPHOMA
     Dosage: 6 MG/M2,DAYS 1,8 AND 15 (CYCLE A)
  2. MERCAPTOPURINE. [Suspect]
     Active Substance: MERCAPTOPURINE
     Indication: ANAPLASTIC LARGE-CELL LYMPHOMA
     Dosage: 50 MG/M2, DAILY (MAINTENANCE)
     Route: 048
  3. METHOTREXATE. [Suspect]
     Active Substance: METHOTREXATE
     Indication: ANAPLASTIC LARGE-CELL LYMPHOMA
     Dosage: DAYS 8 AND 11 (CYCLE A)
     Route: 037
  4. METHOTREXATE. [Suspect]
     Active Substance: METHOTREXATE
     Dosage: 15 MG/M2, DAYS 1-3 (CYCLE B)
  5. METHOTREXATE. [Suspect]
     Active Substance: METHOTREXATE
     Dosage: DAYS 8 AND 12 (CYCLE B)
     Route: 037
  6. CYTARABINE. [Suspect]
     Active Substance: CYTARABINE
     Indication: ANAPLASTIC LARGE-CELL LYMPHOMA
     Dosage: 1000 MG/M2, DAY 1 (CYCLE A)
  7. CYTARABINE. [Suspect]
     Active Substance: CYTARABINE
     Dosage: DAY 4  ON CYCLE A, DAY 1 AND 4  ON CYCLE B
     Route: 037
  8. ETOPOSIDE. [Suspect]
     Active Substance: ETOPOSIDE
     Indication: ANAPLASTIC LARGE-CELL LYMPHOMA
     Dosage: 60 MG/M2, DAYS 1-3 (CYCLE B)
  9. MESNA. [Suspect]
     Active Substance: MESNA
     Indication: ANAPLASTIC LARGE-CELL LYMPHOMA
     Dosage: 400 MG/M2, AT 0, 4, AND 8 H AFTER THE START OF IFOSFAMIDE INFUSION
     Route: 042
  10. VINBLASTINE [Suspect]
     Active Substance: VINBLASTINE
     Dosage: 6 MG/M2, DAYS 1 AND 8 (CYCLE B)
  11. CYCLOPHOSPHAMIDE. [Suspect]
     Active Substance: CYCLOPHOSPHAMIDE
     Dosage: 200 MG/M2, DAYS 2-4 (CYCLE A)
  12. DOXORUBICIN HCL [Suspect]
     Active Substance: DOXORUBICIN HYDROCHLORIDE
     Indication: ANAPLASTIC LARGE-CELL LYMPHOMA
     Dosage: 20 MG/M2, DAYS 1 AND 2 (CYCLE A)
  13. IFOSFAMIDE. [Suspect]
     Active Substance: IFOSFAMIDE
     Indication: ANAPLASTIC LARGE-CELL LYMPHOMA
     Dosage: 1200 MG/M2, DAYS 1-5
     Route: 041
  14. CYCLOPHOSPHAMIDE. [Suspect]
     Active Substance: CYCLOPHOSPHAMIDE
     Indication: ANAPLASTIC LARGE-CELL LYMPHOMA
     Dosage: 800 MG/M2, DAY 1 (CYCLE A)
  15. METHOTREXATE. [Suspect]
     Active Substance: METHOTREXATE
     Dosage: 20 MG/M2, WEEKLY (MAINTENANCE)
     Route: 048

REACTIONS (1)
  - Neutropenic sepsis [Fatal]
